FAERS Safety Report 8074893-3 (Version None)
Quarter: 2012Q1

REPORT INFORMATION
  Report Type: 
  Country: None (occurrence: None)
  Receive Date: 20120126
  Receipt Date: 20120118
  Transmission Date: 20120608
  Serious: Yes (Hospitalization, Other)
  Sender: FDA-Public Use
  Company Number: US-BAXTER-2012BH000297

PATIENT
  Sex: Male

DRUGS (1)
  1. DIANEAL [Suspect]
     Indication: PERITONEAL DIALYSIS
     Route: 033

REACTIONS (5)
  - CEREBROVASCULAR ACCIDENT [None]
  - PERITONITIS BACTERIAL [None]
  - PERITONEAL DIALYSIS COMPLICATION [None]
  - SPEECH DISORDER [None]
  - CONFUSIONAL STATE [None]
